FAERS Safety Report 4627273-4 (Version None)
Quarter: 2005Q2

REPORT INFORMATION
  Report Type: 
  Country: None (occurrence: None)
  Receive Date: 20050405
  Receipt Date: 20030521
  Transmission Date: 20051028
  Serious: Yes (Hospitalization, Other)
  Sender: FDA-Public Use
  Company Number: CA-BOEHRINGER INGELHEIM PHARMACEUTICALS, INC.-2003-BP-03378BP

PATIENT
  Sex: Male
  Weight: 86.2 kg

DRUGS (12)
  1. MICARDIS [Suspect]
     Indication: CARDIOVASCULAR DISORDER
     Route: 048
     Dates: start: 20030501, end: 20030519
  2. MICARDIS [Suspect]
     Indication: CEREBROVASCULAR ACCIDENT PROPHYLAXIS
  3. RAMIPRIL [Suspect]
     Indication: CARDIOVASCULAR DISORDER
     Route: 048
     Dates: start: 20030501, end: 20030519
  4. RAMIPRIL [Suspect]
     Indication: CEREBROVASCULAR ACCIDENT PROPHYLAXIS
  5. TIAZAC [Suspect]
  6. ASPIRIN [Concomitant]
     Dates: end: 20030101
  7. ZOCOR [Concomitant]
  8. ZOLOFT [Concomitant]
  9. GLUCOPHAGE [Concomitant]
  10. SERAX [Concomitant]
  11. ZANTAC [Concomitant]
  12. INSULIN [Concomitant]

REACTIONS (4)
  - BLOOD CREATININE INCREASED [None]
  - BLOOD POTASSIUM INCREASED [None]
  - HEADACHE [None]
  - HYPOTENSION [None]
